FAERS Safety Report 17739850 (Version 2)
Quarter: 2020Q2

REPORT INFORMATION
  Report Type: Spontaneous
  Country: AU (occurrence: AU)
  Receive Date: 20200504
  Receipt Date: 20200521
  Transmission Date: 20200714
  Serious: Yes (Other)
  Sender: FDA-Public Use
  Company Number: AU-SA-2020SA112697

PATIENT
  Age: 22 Year

DRUGS (1)
  1. DUPIXENT [Suspect]
     Active Substance: DUPILUMAB
     Dosage: UNK

REACTIONS (7)
  - Tri-iodothyronine decreased [Unknown]
  - Malaise [Unknown]
  - Hyperthyroidism [Unknown]
  - Basedow^s disease [Unknown]
  - Thyroxine abnormal [Unknown]
  - Blood thyroid stimulating hormone decreased [Unknown]
  - Thyroiditis subacute [Unknown]

NARRATIVE: CASE EVENT DATE: 202004
